FAERS Safety Report 21340896 (Version 1)
Quarter: 2022Q3

REPORT INFORMATION
  Report Type: Spontaneous
  Country: PT (occurrence: PT)
  Receive Date: 20220916
  Receipt Date: 20220916
  Transmission Date: 20221027
  Serious: Yes (Other)
  Sender: FDA-Public Use
  Company Number: PT-INFARMED-T202209-313

PATIENT
  Age: 71 Year
  Sex: Female
  Weight: 66 kg

DRUGS (3)
  1. CIPROFLOXACIN [Suspect]
     Active Substance: CIPROFLOXACIN
     Indication: Klebsiella infection
     Dosage: 400 MILLIGRAM PER 8 HOURS
     Route: 042
     Dates: start: 20220831, end: 20220831
  2. RISPERIDONE [Concomitant]
     Active Substance: RISPERIDONE
     Indication: Product used for unknown indication
     Dosage: UNK
     Route: 048
  3. TRAZODONE HYDROCHLORIDE [Concomitant]
     Active Substance: TRAZODONE HYDROCHLORIDE
     Indication: Product used for unknown indication
     Dosage: UNK
     Route: 048

REACTIONS (2)
  - Vasodilatation [Recovered/Resolved]
  - Infusion site pruritus [Recovered/Resolved]

NARRATIVE: CASE EVENT DATE: 20220831
